FAERS Safety Report 15134922 (Version 1)
Quarter: 2018Q3

REPORT INFORMATION
  Report Type: Spontaneous
  Country: US (occurrence: US)
  Receive Date: 20180616
  Receipt Date: 20180616
  Transmission Date: 20181010
  Serious: Yes (Other)
  Sender: FDA-Public Use
  Company Number: None

PATIENT
  Age: 61 Year
  Sex: Female
  Weight: 94.5 kg

DRUGS (7)
  1. LEVOTHYROXINE. [Concomitant]
     Active Substance: LEVOTHYROXINE
  2. VITAMIN B12 [Concomitant]
     Active Substance: CYANOCOBALAMIN
  3. LUTEIN [Concomitant]
     Active Substance: LUTEIN
  4. SOLIQUA 100/33 [Concomitant]
     Active Substance: INSULIN GLARGINE\LIXISENATIDE
  5. CIPROFLOXACIN HCL [Suspect]
     Active Substance: CIPROFLOXACIN HYDROCHLORIDE
     Indication: URINARY TRACT INFECTION
     Dosage: ?          QUANTITY:14 TABLET(S);?
     Route: 048
     Dates: start: 20180609, end: 20180615
  6. BENICAR [Concomitant]
     Active Substance: OLMESARTAN MEDOXOMIL
  7. FISH OIL [Concomitant]
     Active Substance: FISH OIL

REACTIONS (8)
  - Heart rate increased [None]
  - Tendonitis [None]
  - Abdominal pain upper [None]
  - Asthenia [None]
  - Muscle spasms [None]
  - Sleep disorder [None]
  - Tendon pain [None]
  - Type 2 diabetes mellitus [None]

NARRATIVE: CASE EVENT DATE: 20180614
